FAERS Safety Report 6300215-1 (Version None)
Quarter: 2009Q3

REPORT INFORMATION
  Report Type: 
  Country: None (occurrence: None)
  Receive Date: 20090806
  Receipt Date: 20090420
  Transmission Date: 20100115
  Serious: Yes (Hospitalization)
  Sender: FDA-Public Use
  Company Number: PHHO2009BE05252

PATIENT
  Sex: Female

DRUGS (4)
  1. RAD 666 RAD+TAB [Suspect]
     Indication: TRANSITIONAL CELL CARCINOMA
     Dosage: 10 MG/DAY
     Route: 048
     Dates: start: 19990122
  2. CIPRALAN [Suspect]
     Route: 048
  3. EXACYL [Suspect]
     Route: 048
  4. SOTALEX [Suspect]
     Route: 048

REACTIONS (1)
  - CEREBROVASCULAR ACCIDENT [None]
